FAERS Safety Report 12305914 (Version 1)
Quarter: 2016Q2

REPORT INFORMATION
  Report Type: Spontaneous
  Country: US (occurrence: US)
  Receive Date: 20160426
  Receipt Date: 20160426
  Transmission Date: 20160815
  Serious: Yes (Hospitalization)
  Sender: FDA-Public Use
  Company Number: US-JNJFOC-20160418579

PATIENT
  Sex: Female

DRUGS (17)
  1. ATIVAN [Suspect]
     Active Substance: LORAZEPAM
     Indication: VOMITING
     Route: 048
     Dates: start: 20150930, end: 20151007
  2. ATIVAN [Suspect]
     Active Substance: LORAZEPAM
     Indication: NAUSEA
     Route: 048
     Dates: start: 20150930, end: 20151007
  3. XANAX [Suspect]
     Active Substance: ALPRAZOLAM
     Indication: PRODUCT USED FOR UNKNOWN INDICATION
     Dosage: THREE TIMES A DAY
     Route: 048
     Dates: start: 20151004, end: 20151006
  4. FLEXERIL [Suspect]
     Active Substance: CYCLOBENZAPRINE HYDROCHLORIDE
     Indication: MUSCLE SPASMS
     Route: 048
     Dates: start: 20150930, end: 20151007
  5. SUBLIMAZE [Suspect]
     Active Substance: FENTANYL CITRATE
     Indication: PAIN
     Dosage: EVERY THREE MINUTES
     Route: 042
     Dates: start: 20151005, end: 20151005
  6. DILAUDID [Suspect]
     Active Substance: HYDROMORPHONE HYDROCHLORIDE
     Indication: PAIN
     Dosage: 2 MG/ML INJECTION 1 MG EVERY TWO HOURS.
     Route: 042
     Dates: start: 20151001, end: 20151006
  7. VERSED [Suspect]
     Active Substance: MIDAZOLAM HYDROCHLORIDE
     Indication: PRODUCT USED FOR UNKNOWN INDICATION
     Route: 042
     Dates: start: 20151005, end: 20151005
  8. PHENYLEPHRINE [Suspect]
     Active Substance: PHENYLEPHRINE\PHENYLEPHRINE HYDROCHLORIDE
     Indication: PRODUCT USED FOR UNKNOWN INDICATION
     Route: 065
     Dates: start: 20151005, end: 20151005
  9. DIPRIVAN [Suspect]
     Active Substance: PROPOFOL
     Indication: PRODUCT USED FOR UNKNOWN INDICATION
     Route: 042
     Dates: start: 20151005, end: 20151005
  10. ROXICODONE [Suspect]
     Active Substance: OXYCODONE HYDROCHLORIDE
     Indication: THERAPEUTIC RESPONSE DECREASED
     Route: 048
     Dates: start: 20151001, end: 20151007
  11. DURAGESIC [Suspect]
     Active Substance: FENTANYL
     Indication: PRODUCT USED FOR UNKNOWN INDICATION
     Dosage: 100 UG/HR + 50 UG/HR
     Route: 062
     Dates: start: 20151001, end: 20151007
  12. RIVAROXABAN [Concomitant]
     Active Substance: RIVAROXABAN
     Indication: ARTHRALGIA
     Route: 065
     Dates: start: 20100320
  13. RIVAROXABAN [Concomitant]
     Active Substance: RIVAROXABAN
     Indication: COLORECTAL CANCER METASTATIC
     Route: 065
     Dates: start: 20100320
  14. DILAUDID [Suspect]
     Active Substance: HYDROMORPHONE HYDROCHLORIDE
     Indication: PAIN
     Dosage: 1 MG/ML INJECTION 0.5 MG EVERY FIVE MINUTES
     Route: 042
     Dates: start: 20151005, end: 20151005
  15. ENOXAPARIN [Suspect]
     Active Substance: ENOXAPARIN
     Indication: PRODUCT USED FOR UNKNOWN INDICATION
     Route: 058
     Dates: start: 20150917, end: 20151005
  16. RIVAROXABAN [Concomitant]
     Active Substance: RIVAROXABAN
     Indication: ARTHRALGIA
     Route: 065
     Dates: start: 20060522
  17. RIVAROXABAN [Concomitant]
     Active Substance: RIVAROXABAN
     Indication: COLORECTAL CANCER METASTATIC
     Route: 065
     Dates: start: 20060522

REACTIONS (2)
  - Thrombosis [Unknown]
  - Encephalopathy [Recovered/Resolved]
